FAERS Safety Report 4592205-4 (Version None)
Quarter: 2005Q1

REPORT INFORMATION
  Report Type: 
  Country: None (occurrence: None)
  Receive Date: 20050228
  Receipt Date: 20050216
  Transmission Date: 20050727
  Serious: Yes (Other)
  Sender: FDA-Public Use
  Company Number: US-JNJFOC-20050205018

PATIENT
  Sex: Female
  Weight: 72.58 kg

DRUGS (6)
  1. REMICADE [Suspect]
     Indication: CROHN'S DISEASE
     Route: 042
  2. ZOCOR [Concomitant]
  3. METFORMIN HCL [Concomitant]
  4. PREMERIN [Concomitant]
     Indication: DRUG USE FOR UNKNOWN INDICATION
  5. THIOGUANINE [Concomitant]
     Indication: CROHN'S DISEASE
  6. OXYCODON [Concomitant]
     Indication: PAIN

REACTIONS (1)
  - VISUAL ACUITY REDUCED [None]
